FAERS Safety Report 7105474-3 (Version None)
Quarter: 2010Q4

REPORT INFORMATION
  Report Type: 
  Country: None (occurrence: None)
  Receive Date: 20101116
  Receipt Date: 20101111
  Transmission Date: 20110411
  Serious: Yes (Death, Hospitalization)
  Sender: FDA-Public Use
  Company Number: JP-BRACCO-004162

PATIENT
  Age: 64 Year
  Sex: Female

DRUGS (2)
  1. IOPAMIDOL [Suspect]
     Indication: UROGRAM
     Route: 041
     Dates: start: 20101013, end: 20101013
  2. IOPAMIDOL [Suspect]
     Indication: NEPHROLITHIASIS
     Route: 041
     Dates: start: 20101013, end: 20101013

REACTIONS (11)
  - C-REACTIVE PROTEIN INCREASED [None]
  - HYPERHIDROSIS [None]
  - INJECTION SITE EXTRAVASATION [None]
  - INJECTION SITE OEDEMA [None]
  - INJECTION SITE PAIN [None]
  - INJECTION SITE VESICLES [None]
  - NAUSEA [None]
  - SHOCK [None]
  - THIRST [None]
  - VOMITING [None]
  - WHITE BLOOD CELL COUNT INCREASED [None]
